FAERS Safety Report 7235147-8 (Version None)
Quarter: 2011Q1

REPORT INFORMATION
  Report Type: 
  Country: None (occurrence: None)
  Receive Date: 20110120
  Receipt Date: 20110115
  Transmission Date: 20110831
  Serious: Yes (Other)
  Sender: FDA-Public Use
  Company Number: US-PFIZER INC-2011010324

PATIENT
  Sex: Male
  Weight: 84.354 kg

DRUGS (1)
  1. VIAGRA [Suspect]
     Dosage: UNK
     Dates: start: 20110113

REACTIONS (3)
  - FEAR [None]
  - DIZZINESS [None]
  - ERECTION INCREASED [None]
